FAERS Safety Report 7207429-7 (Version None)
Quarter: 2011Q1

REPORT INFORMATION
  Report Type: 
  Country: None (occurrence: None)
  Receive Date: 20110103
  Receipt Date: 20101230
  Transmission Date: 20110831
  Serious: No
  Sender: FDA-Public Use
  Company Number: US-PFIZER INC-2007094307

PATIENT
  Sex: Female
  Weight: 56.689 kg

DRUGS (8)
  1. VESICARE [Concomitant]
     Dosage: UNK
  2. LISINOPRIL [Concomitant]
     Indication: HYPERTENSION
     Dosage: 10 MG, DAILY
  3. ACETYLSALICYLIC ACID SRT [Concomitant]
     Dosage: UNK
  4. NICOTROL [Suspect]
     Indication: SMOKING CESSATION THERAPY
     Dosage: UNK
     Dates: start: 20070504
  5. SUDAFED 12 HOUR [Concomitant]
     Dosage: UNK
  6. BENADRYL [Concomitant]
     Dosage: UNK
  7. NICOTROL [Suspect]
     Dosage: UNK, 3X/DAY
     Dates: end: 20091101
  8. ESTRADERM [Concomitant]
     Dosage: 0.05 MG, 2X/WEEK

REACTIONS (2)
  - TOBACCO USER [None]
  - DYSGEUSIA [None]
